FAERS Safety Report 5304576-1 (Version None)
Quarter: 2007Q2

REPORT INFORMATION
  Report Type: 
  Country: None (occurrence: None)
  Receive Date: 20070423
  Receipt Date: 20070416
  Transmission Date: 20071010
  Serious: Yes (Hospitalization)
  Sender: FDA-Public Use
  Company Number: US-GLAXOSMITHKLINE-A0647444A

PATIENT
  Sex: Male

DRUGS (3)
  1. COREG [Suspect]
     Dosage: 12.5MG TWICE PER DAY
     Route: 048
     Dates: start: 19950101
  2. IMDUR [Concomitant]
  3. LOTENSIN [Concomitant]

REACTIONS (3)
  - ADVERSE EVENT [None]
  - DIZZINESS [None]
  - PSYCHOMOTOR HYPERACTIVITY [None]
